FAERS Safety Report 10844200 (Version 2)
Quarter: 2015Q2

REPORT INFORMATION
  Report Type: Spontaneous
  Country: CA (occurrence: CA)
  Receive Date: 20150220
  Receipt Date: 20150420
  Transmission Date: 20150821
  Serious: No
  Sender: FDA-Public Use
  Company Number: CA-ASTELLAS-2015US004630

PATIENT
  Sex: Female

DRUGS (2)
  1. ADVAGRAF [Suspect]
     Active Substance: TACROLIMUS
     Route: 048
  2. ADVAGRAF [Suspect]
     Active Substance: TACROLIMUS
     Indication: RENAL TRANSPLANT
     Route: 048

REACTIONS (1)
  - Drug level decreased [Unknown]
